FAERS Safety Report 12563149 (Version 1)
Quarter: 2016Q3

REPORT INFORMATION
  Report Type: Spontaneous
  Country: US (occurrence: US)
  Receive Date: 20160715
  Receipt Date: 20160715
  Transmission Date: 20161109
  Serious: No
  Sender: FDA-Public Use
  Company Number: US-PFIZER INC-2016307661

PATIENT
  Age: 73 Year
  Sex: Male
  Weight: 58.97 kg

DRUGS (1)
  1. TIKOSYN [Suspect]
     Active Substance: DOFETILIDE
     Indication: CARDIAC DISORDER
     Dosage: 500 UG, 2X/DAY
     Route: 048
     Dates: start: 20160428

REACTIONS (1)
  - Headache [Not Recovered/Not Resolved]
